FAERS Safety Report 5170006-6 (Version None)
Quarter: 2006Q4

REPORT INFORMATION
  Report Type: 
  Country: None (occurrence: None)
  Receive Date: 20061212
  Receipt Date: 20061211
  Transmission Date: 20070319
  Serious: Yes (Hospitalization)
  Sender: FDA-Public Use
  Company Number: FR-GLAXOSMITHKLINE-B0449945A

PATIENT
  Age: 93 Year
  Sex: Male
  Weight: 85 kg

DRUGS (12)
  1. ZELITREX [Suspect]
     Indication: HERPES ZOSTER
     Dosage: 1G THREE TIMES PER DAY
     Route: 048
     Dates: start: 20060907, end: 20060909
  2. LAMALINE [Suspect]
     Route: 048
     Dates: start: 20060907, end: 20060909
  3. MYOLASTAN [Suspect]
     Dosage: 1UNIT AT NIGHT
     Route: 048
     Dates: start: 20060829, end: 20060909
  4. RIVOTRIL [Suspect]
     Route: 048
     Dates: start: 20060829, end: 20060909
  5. HEXAQUINE [Concomitant]
     Dosage: 4UNIT PER DAY
     Route: 048
     Dates: start: 20060829, end: 20060909
  6. UMULINE [Concomitant]
  7. TANAKAN [Concomitant]
     Dosage: 1UNIT THREE TIMES PER DAY
     Dates: end: 20060909
  8. FORLAX [Concomitant]
     Dosage: 2UNIT IN THE MORNING
     Dates: end: 20060909
  9. ARTHROCINE [Concomitant]
     Dosage: 200MG PER DAY
     Route: 048
     Dates: end: 20060909
  10. DOLIPRANE [Concomitant]
     Dosage: 1000MG THREE TIMES PER DAY
     Route: 048
  11. OGAST [Concomitant]
     Dates: end: 20060909
  12. VOLTAREN [Concomitant]
     Route: 030
     Dates: start: 20060829, end: 20060909

REACTIONS (5)
  - AGITATION [None]
  - CONFUSIONAL STATE [None]
  - HALLUCINATION, VISUAL [None]
  - LOGORRHOEA [None]
  - RENAL FAILURE ACUTE [None]
